FAERS Safety Report 25222417 (Version 1)
Quarter: 2025Q2

REPORT INFORMATION
  Report Type: Spontaneous
  Country: GB (occurrence: GB)
  Receive Date: 20250421
  Receipt Date: 20250421
  Transmission Date: 20250717
  Serious: Yes (Disabling, Other)
  Sender: TEVA
  Company Number: None

PATIENT
  Age: 64 Year
  Sex: Male
  Weight: 148 kg

DRUGS (1)
  1. RAMIPRIL [Suspect]
     Active Substance: RAMIPRIL
     Indication: Cardiac failure
     Dosage: .25MG 1 PER DAY AT NIGHT, APS TEVA
     Route: 065
     Dates: start: 20241223

REACTIONS (2)
  - Erectile dysfunction [Not Recovered/Not Resolved]
  - Loss of libido [Not Recovered/Not Resolved]

NARRATIVE: CASE EVENT DATE: 20250101
